FAERS Safety Report 4387724-X (Version None)
Quarter: 2004Q2

REPORT INFORMATION
  Report Type: 
  Country: None (occurrence: None)
  Receive Date: 20040625
  Receipt Date: 20040605
  Transmission Date: 20050107
  Serious: No
  Sender: FDA-Public Use
  Company Number: 20041860

PATIENT
  Sex: Male

DRUGS (1)
  1. LIORESAL [Suspect]
     Indication: MUSCLE SPASTICITY
     Dosage: UNK MCG, DAILY, INTRATHECAL
     Route: 037

REACTIONS (12)
  - CATHETER RELATED COMPLICATION [None]
  - CONFUSIONAL STATE [None]
  - CONVULSION [None]
  - ENTEROCOCCAL SEPSIS [None]
  - HEADACHE [None]
  - HYPERTONIA [None]
  - HYPOTENSION [None]
  - MEDICATION ERROR [None]
  - POST PROCEDURAL COMPLICATION [None]
  - PRURITUS [None]
  - SELF-MEDICATION [None]
  - URINARY TRACT INFECTION [None]
